FAERS Safety Report 4985962-6 (Version None)
Quarter: 2006Q2

REPORT INFORMATION
  Report Type: 
  Country: None (occurrence: None)
  Receive Date: 20060421
  Receipt Date: 20060407
  Transmission Date: 20061013
  Serious: Yes (Death, Other)
  Sender: FDA-Public Use
  Company Number: GB-2006-008353

PATIENT
  Age: 48 Year
  Sex: Male

DRUGS (1)
  1. CAMPATH [Suspect]
     Indication: ANTI-NEUTROPHIL CYTOPLASMIC ANTIBODY POSITIVE VASCULITIS

REACTIONS (11)
  - ACQUIRED HAEMOPHILIA [None]
  - CARDIAC ARREST [None]
  - DUODENAL ULCER [None]
  - DYSPHAGIA [None]
  - HEPATITIS B [None]
  - LABORATORY TEST ABNORMAL [None]
  - LYMPHOPENIA [None]
  - MOUTH HAEMORRHAGE [None]
  - PERITONEAL DIALYSIS [None]
  - PERITONEAL HAEMORRHAGE [None]
  - WHITE BLOOD CELL COUNT INCREASED [None]
